FAERS Safety Report 8816176 (Version 1)
Quarter: 2012Q4

REPORT INFORMATION
  Report Type: 
  Country: US (occurrence: US)
  Receive Date: 20120929
  Receipt Date: 20120929
  Transmission Date: 20130627
  Serious: No
  Sender: FDA-Public Use
  Company Number: US-009507513-1209USA005613

PATIENT
  Sex: Female

DRUGS (3)
  1. PEGINTRON [Suspect]
     Indication: HEPATITIS
     Route: 058
  2. VICTRELIS [Suspect]
     Indication: HEPATITIS
     Route: 048
  3. REBETOL [Suspect]
     Indication: HEPATITIS
     Route: 048

REACTIONS (1)
  - Hepatitis C virus test positive [Unknown]
